FAERS Safety Report 4534249-4 (Version None)
Quarter: 2004Q4

REPORT INFORMATION
  Report Type: 
  Country: None (occurrence: None)
  Receive Date: 20041222
  Receipt Date: 20040130
  Transmission Date: 20050328
  Serious: Yes (Death, Hospitalization)
  Sender: FDA-Public Use
  Company Number: 200410226JP

PATIENT
  Age: 60 Year
  Sex: Female

DRUGS (16)
  1. ARAVA [Suspect]
     Indication: RHEUMATOID ARTHRITIS
     Route: 048
     Dates: start: 20031105, end: 20031208
  2. PREDONINE [Concomitant]
     Indication: RHEUMATOID ARTHRITIS
     Route: 048
  3. RIMATIL [Concomitant]
     Indication: RHEUMATOID ARTHRITIS
     Route: 048
  4. LOXONIN [Concomitant]
     Indication: PAIN
     Route: 048
  5. FAMOTIDINE [Concomitant]
     Indication: GASTRIC ULCER
     Dosage: DOSE: 2T
     Route: 048
  6. MUCOSTA [Concomitant]
     Indication: ULCER
     Route: 048
  7. SELBEX [Concomitant]
     Indication: GASTRIC ULCER
     Route: 048
     Dates: start: 20031022
  8. MECOBALAMINE [Concomitant]
     Indication: CERVICAL MYELOPATHY
  9. MECOBALAMINE [Concomitant]
     Indication: VITAMIN B12 DEFICIENCY
  10. VOLTAREN [Concomitant]
     Indication: PAIN
     Route: 048
     Dates: start: 20031103
  11. MUCODYNE [Concomitant]
     Indication: BRONCHIECTASIS
     Route: 048
     Dates: start: 20031114, end: 20031220
  12. MUCODYNE [Concomitant]
     Indication: PRODUCTIVE COUGH
     Route: 048
     Dates: start: 20031114, end: 20031220
  13. BISPHOSPHONATES [Concomitant]
     Indication: OSTEOPOROSIS
     Route: 048
     Dates: start: 20031117, end: 20031124
  14. FERROMIA [Concomitant]
     Indication: ANAEMIA
     Route: 048
     Dates: start: 20031119, end: 20031229
  15. LANSOPRAZOLE [Concomitant]
     Indication: GASTRIC DISORDER
     Route: 048
     Dates: start: 20040106, end: 20040106
  16. LANSOPRAZOLE [Concomitant]
     Indication: PROPHYLAXIS
     Route: 048
     Dates: start: 20040106, end: 20040106

REACTIONS (17)
  - ABDOMINAL PAIN [None]
  - BONE MARROW DEPRESSION [None]
  - CERVICAL MYELOPATHY [None]
  - CHILLS [None]
  - CONDITION AGGRAVATED [None]
  - DIARRHOEA [None]
  - GENERAL PHYSICAL HEALTH DETERIORATION [None]
  - HISTIOCYTOSIS HAEMATOPHAGIC [None]
  - HYPOAESTHESIA [None]
  - INFECTION [None]
  - NEUTROPHIL PERCENTAGE DECREASED [None]
  - PAIN IN EXTREMITY [None]
  - PERITONITIS [None]
  - PNEUMONIA [None]
  - PYREXIA [None]
  - RESPIRATORY DISORDER [None]
  - WHITE BLOOD CELL COUNT DECREASED [None]
